FAERS Safety Report 5877711-4 (Version None)
Quarter: 2008Q3

REPORT INFORMATION
  Report Type: 
  Country: None (occurrence: None)
  Receive Date: 20080911
  Receipt Date: 20080902
  Transmission Date: 20090109
  Serious: Yes (Other)
  Sender: FDA-Public Use
  Company Number: US-JNJFOC-20080900819

PATIENT
  Sex: Female
  Weight: 49.9 kg

DRUGS (9)
  1. ELMIRON [Suspect]
     Indication: CYSTITIS INTERSTITIAL
     Route: 048
  2. DURAGESIC-100 [Suspect]
     Route: 062
  3. DURAGESIC-100 [Suspect]
     Indication: PAIN
     Route: 062
  4. DURAGESIC-100 [Suspect]
     Indication: CYSTITIS INTERSTITIAL
     Route: 062
  5. HYDROXYZINE [Concomitant]
     Indication: CYSTITIS INTERSTITIAL
     Route: 048
  6. AMITRIPTYLINE HCL [Concomitant]
     Indication: CYSTITIS INTERSTITIAL
     Route: 048
  7. COMPAZINE [Concomitant]
     Indication: NAUSEA
     Route: 048
  8. DIAZEPAM [Concomitant]
     Indication: CYSTITIS INTERSTITIAL
     Route: 048
  9. DIAZEPAM [Concomitant]
     Dosage: DAILY AT BED TIME/INTRA-VAGINALLY.
     Route: 067

REACTIONS (6)
  - ANXIETY [None]
  - COLD SWEAT [None]
  - COMPLEX REGIONAL PAIN SYNDROME [None]
  - FIBROMYALGIA [None]
  - HYPERHIDROSIS [None]
  - PHARMACEUTICAL PRODUCT COMPLAINT [None]
